FAERS Safety Report 10708699 (Version 2)
Quarter: 2015Q1

REPORT INFORMATION
  Report Type: Spontaneous
  Country: CL (occurrence: CL)
  Receive Date: 20150113
  Receipt Date: 20150126
  Transmission Date: 20150721
  Serious: Yes (Hospitalization, Other)
  Sender: FDA-Public Use
  Company Number: CL-BAUSCH-BL-2015-000699

PATIENT
  Age: 65 Year
  Sex: Male

DRUGS (4)
  1. RIBAVIRIN. [Suspect]
     Active Substance: RIBAVIRIN
     Indication: CHRONIC HEPATITIS C
     Dates: start: 20130315
  2. RIBAVIRIN. [Suspect]
     Active Substance: RIBAVIRIN
     Dates: start: 2013
  3. PEGINTERFERON ALFA-2A [Suspect]
     Active Substance: PEGINTERFERON ALFA-2A
     Indication: CHRONIC HEPATITIS C
     Dates: start: 20130315
  4. TELAPREVIR [Suspect]
     Active Substance: TELAPREVIR
     Indication: CHRONIC HEPATITIS C
     Dates: start: 20130315, end: 2013

REACTIONS (9)
  - Fatigue [Recovering/Resolving]
  - Anaemia [Recovered/Resolved]
  - Mycobacterium abscessus infection [Recovered/Resolved]
  - Oedema peripheral [Recovered/Resolved]
  - Weight decreased [Recovering/Resolving]
  - Anorectal discomfort [Recovering/Resolving]
  - Rash [Recovered/Resolved]
  - Ascites [Recovered/Resolved]
  - Pruritus [Recovered/Resolved]

NARRATIVE: CASE EVENT DATE: 2013
